FAERS Safety Report 19089710 (Version 1)
Quarter: 2021Q2

REPORT INFORMATION
  Report Type: Report from Study
  Country: None (occurrence: CA)
  Receive Date: 20210403
  Receipt Date: 20210403
  Transmission Date: 20210717
  Serious: Yes (Other)
  Sender: FDA-Public Use
  Company Number: CA-ABBVIE-21K-028-3844853-00

PATIENT
  Sex: Male

DRUGS (1)
  1. IMBRUVICA [Suspect]
     Active Substance: IBRUTINIB
     Indication: CHRONIC LYMPHOCYTIC LEUKAEMIA
     Route: 048

REACTIONS (7)
  - Surgery [Unknown]
  - Heart rate irregular [Unknown]
  - Off label use [Unknown]
  - Cardiac disorder [Unknown]
  - Eye haemorrhage [Unknown]
  - Blood pressure increased [Unknown]
  - Incorrect dose administered [Unknown]
